FAERS Safety Report 24671842 (Version 1)
Quarter: 2024Q4

REPORT INFORMATION
  Report Type: Spontaneous
  Country: GB (occurrence: GB)
  Receive Date: 20241127
  Receipt Date: 20241127
  Transmission Date: 20250115
  Serious: Yes (Disabling, Other)
  Sender: B BRAUN
  Company Number: GB-B.Braun Medical Inc.-2166096

PATIENT
  Age: 50 Year
  Sex: Male
  Weight: 87 kg

DRUGS (2)
  1. METRONIDAZOLE [Suspect]
     Active Substance: METRONIDAZOLE
     Indication: Tooth abscess
     Dates: start: 20241106, end: 20241108
  2. Noumed life sciences amoxicillin [Concomitant]

REACTIONS (2)
  - Loss of libido [Recovering/Resolving]
  - Off label use [Recovering/Resolving]
